FAERS Safety Report 22600650 (Version 4)
Quarter: 2023Q4

REPORT INFORMATION
  Report Type: Spontaneous
  Country: JP (occurrence: JP)
  Receive Date: 20230614
  Receipt Date: 20231010
  Transmission Date: 20240109
  Serious: Yes (Death, Hospitalization, Other)
  Sender: FDA-Public Use
  Company Number: JP-MSD-M2023-19538

PATIENT
  Age: 73 Year
  Sex: Female

DRUGS (2)
  1. KEYTRUDA [Suspect]
     Active Substance: PEMBROLIZUMAB
     Indication: Uterine cancer
     Dosage: 200 MILLIGRAM, Q3W
     Route: 041
     Dates: start: 20230501, end: 20230501
  2. LENVATINIB MESYLATE [Suspect]
     Active Substance: LENVATINIB MESYLATE
     Indication: Uterine cancer
     Dosage: UNK
     Route: 048
     Dates: start: 20230501, end: 20230514

REACTIONS (10)
  - Myocarditis infectious [Fatal]
  - Immune-mediated myocarditis [Fatal]
  - Cardiogenic shock [Unknown]
  - Multiple organ dysfunction syndrome [Unknown]
  - Disseminated intravascular coagulation [Unknown]
  - Depressed level of consciousness [Unknown]
  - Hypothyroidism [Unknown]
  - Platelet count decreased [Unknown]
  - Pneumonia [Unknown]
  - Hypertension [Unknown]

NARRATIVE: CASE EVENT DATE: 20230101
